FAERS Safety Report 24367851 (Version 3)
Quarter: 2024Q4

REPORT INFORMATION
  Report Type: Spontaneous
  Country: US (occurrence: US)
  Receive Date: 20240926
  Receipt Date: 20241218
  Transmission Date: 20250115
  Serious: No
  Sender: PFIZER
  Company Number: US-PFIZER INC-PV202400066409

PATIENT
  Age: 73 Year
  Sex: Male
  Weight: 72.57 kg

DRUGS (1)
  1. BRAFTOVI [Suspect]
     Active Substance: ENCORAFENIB
     Dosage: 4 DF, 1X/DAY
     Route: 048

REACTIONS (1)
  - Neoplasm progression [Unknown]
